FAERS Safety Report 14364714 (Version 1)
Quarter: 2018Q1

REPORT INFORMATION
  Report Type: Spontaneous
  Country: US (occurrence: US)
  Receive Date: 20180107
  Receipt Date: 20180107
  Transmission Date: 20180509
  Serious: No
  Sender: FDA-Public Use
  Company Number: None

PATIENT
  Sex: Female
  Weight: 54 kg

DRUGS (5)
  1. VITAMIN D2 [Concomitant]
     Active Substance: ERGOCALCIFEROL
  2. MULTI-NUTRIENT COMPLEX FOR WOMEN [Concomitant]
  3. EYESCIENCE MACULAR HEALTH FORMULA [Concomitant]
  4. CALCIUM CARBONATE+VITAMIN D3 [Concomitant]
  5. ATORVASTATIN 20MG DAILY GENERIC EQUIVALENT FOR LIPITOR [Suspect]
     Active Substance: ATORVASTATIN
     Indication: BLOOD CHOLESTEROL INCREASED
     Dosage: ?          QUANTITY:1 TABLET(S);?
     Route: 048
     Dates: start: 20171207, end: 20171212

REACTIONS (1)
  - Tinnitus [None]

NARRATIVE: CASE EVENT DATE: 20171208
